FAERS Safety Report 24738404 (Version 1)
Quarter: 2024Q4

REPORT INFORMATION
  Report Type: Spontaneous
  Country: US (occurrence: US)
  Receive Date: 20241216
  Receipt Date: 20241216
  Transmission Date: 20250115
  Serious: Yes (Life-Threatening, Hospitalization, Other)
  Sender: PFIZER
  Company Number: US-PFIZER INC-PV202400161142

PATIENT
  Sex: Female

DRUGS (15)
  1. ABRYSVO [Suspect]
     Active Substance: RECOMBINANT STABILIZED RSV A PREFUSION F ANTIGEN\RECOMBINANT STABILIZED RSV B PREFUSION F ANTIGEN
     Indication: Immunisation
     Dosage: DOSE NUMBER UNKNOWN, SINGLE
  2. FUROSEMIDE [Suspect]
     Active Substance: FUROSEMIDE
     Dosage: 1 DF QD (ONCE DAILY) VIA ORALLY
     Route: 048
  3. LEVOTHYROXINE SODIUM [Suspect]
     Active Substance: LEVOTHYROXINE SODIUM
     Dosage: 1 DF QD(ONCE DAILY) VIA ORALLY
     Route: 048
  4. LIDOCAINE HYDROCHLORIDE [Suspect]
     Active Substance: LIDOCAINE HYDROCHLORIDE
     Indication: Pain
     Dosage: 4% TOPICAL APPLIED ONCE DAILY AS PER NEEDED
     Route: 061
  5. ACETAMINOPHEN [Suspect]
     Active Substance: ACETAMINOPHEN
     Indication: Pain
     Dosage: 1 DF QD(ONCE DAILY) VIA ORALLY
     Route: 048
  6. ALBUTEROL SULFATE [Suspect]
     Active Substance: ALBUTEROL SULFATE
     Indication: Dyspnoea
     Dosage: 2 DF
  7. DOCUSATE [Suspect]
     Active Substance: DOCUSATE
     Dosage: 1 DF QD(ONCE DAILY) VIA ORALLY
     Route: 048
  8. VITAMIN D3 [Suspect]
     Active Substance: CHOLECALCIFEROL
     Dosage: 2 DF QD(ONCE DAILY) VIA ORALLY
     Route: 048
  9. FAMOTIDINE [Suspect]
     Active Substance: FAMOTIDINE
     Dosage: 1 DF BID(TWICE DAILY) VIA ORALLY
     Route: 048
  10. MAGNESIUM OXIDE [Suspect]
     Active Substance: MAGNESIUM OXIDE
     Dosage: 1 DF QD (ONCE DAILY) VIA ORALLY
     Route: 048
  11. MURO 128 [Suspect]
     Active Substance: SODIUM CHLORIDE
     Dosage: 1 DROP QID (FOUR TIMES IN A DAY)
     Route: 047
  12. ACETAMINOPHEN [Suspect]
     Active Substance: ACETAMINOPHEN
     Dosage: 500MG - 25 MG, 2 DF QD (ONCE DAILY) VIA ORALLY
     Route: 048
  13. ROSUVASTATIN [Suspect]
     Active Substance: ROSUVASTATIN
     Dosage: 1 DF QD ORAL
     Route: 048
  14. JANTOVEN [Suspect]
     Active Substance: WARFARIN SODIUM
     Dosage: 1 DF BIW
     Route: 048
  15. JANTOVEN [Suspect]
     Active Substance: WARFARIN SODIUM
     Dosage: 0.5 DF0.5 DF 5IW(FIVE TIMES IN A WEEK) ORAL
     Route: 048

REACTIONS (16)
  - Acute respiratory failure [Unknown]
  - Sputum discoloured [Unknown]
  - Traumatic lumbar puncture [Unknown]
  - Albumin CSF increased [Unknown]
  - CSF protein increased [Unknown]
  - CSF red blood cell count positive [Unknown]
  - Asthenia [Unknown]
  - Gastroenteritis viral [Unknown]
  - Incentive spirometry [Unknown]
  - Lung disorder [Unknown]
  - Muscular weakness [Unknown]
  - Neurological decompensation [Unknown]
  - Productive cough [Unknown]
  - Guillain-Barre syndrome [Unknown]
  - Paraesthesia [Unknown]
  - Pneumonia aspiration [Unknown]
